FAERS Safety Report 18121327 (Version 1)
Quarter: 2020Q3

REPORT INFORMATION
  Report Type: Spontaneous
  Country: US (occurrence: US)
  Receive Date: 20200806
  Receipt Date: 20200806
  Transmission Date: 20201103
  Serious: Yes (Other)
  Sender: FDA-Public Use
  Company Number: US-009507513-2008USA002882

PATIENT
  Age: 62 Year
  Sex: Male

DRUGS (5)
  1. PRINIVIL [Concomitant]
     Active Substance: LISINOPRIL
  2. DIFICID [Suspect]
     Active Substance: FIDAXOMICIN
     Dosage: 200 MG TWO TIMES DAILY FOR 10 DAYS
     Route: 048
     Dates: start: 2020, end: 2020
  3. DIFICID [Suspect]
     Active Substance: FIDAXOMICIN
     Dosage: 200 MG TWO TIMES DAILY FOR 10 DAYS
     Route: 048
     Dates: start: 20200805
  4. ATORVASTATIN [Concomitant]
     Active Substance: ATORVASTATIN
  5. DIFICID [Suspect]
     Active Substance: FIDAXOMICIN
     Indication: CLOSTRIDIUM DIFFICILE INFECTION
     Dosage: 200 MG TWO TIMES DAILY FOR 10 DAYS
     Route: 048
     Dates: start: 202005, end: 2020

REACTIONS (3)
  - Clostridium difficile infection [Not Recovered/Not Resolved]
  - Clostridium difficile infection [Recovered/Resolved]
  - Clostridium difficile infection [Recovered/Resolved]

NARRATIVE: CASE EVENT DATE: 2020
